FAERS Safety Report 16446248 (Version 1)
Quarter: 2019Q2

REPORT INFORMATION
  Report Type: Report from Study
  Country: JP (occurrence: JP)
  Receive Date: 20190618
  Receipt Date: 20190618
  Transmission Date: 20190711
  Serious: Yes (Death)
  Sender: FDA-Public Use
  Company Number: JP-CELGENEUS-JPN-20190606581

PATIENT
  Age: 86 Year
  Sex: Male
  Weight: 47.8 kg

DRUGS (1)
  1. ISTODAX [Suspect]
     Active Substance: ROMIDEPSIN
     Indication: ANGIOIMMUNOBLASTIC T-CELL LYMPHOMA
     Route: 041
     Dates: start: 20190304, end: 20190318

REACTIONS (2)
  - Platelet count decreased [Recovered/Resolved]
  - Angioimmunoblastic T-cell lymphoma [Fatal]

NARRATIVE: CASE EVENT DATE: 20190312
